FAERS Safety Report 10177221 (Version 1)
Quarter: 2014Q2

REPORT INFORMATION
  Report Type: Spontaneous
  Country: US (occurrence: None)
  Receive Date: 20140416
  Receipt Date: 20140416
  Transmission Date: 20141212
  Serious: Yes (Other)
  Sender: FDA-Public Use
  Company Number: 163-POMAL-14012044

PATIENT
  Age: 67 Year
  Sex: Male
  Weight: 111.59 kg

DRUGS (15)
  1. POMALYST (POMALIDOMIDE) (2 MILLIGRAM, CAPSULES) [Suspect]
     Indication: PLASMA CELL MYELOMA
     Dosage: 25 MG, 1 IN 2 D, PO
     Route: 048
     Dates: start: 20131127, end: 20131229
  2. ABILIFY (ARIPIPRAZOLE) (UNKNOWN) [Concomitant]
  3. ASPIRIN (ACETYLSALICYLIC ACID) (UNKNOWN) (ACETYLSALICYLIC ACID) [Concomitant]
  4. CRESTOR (ROSUVASTATIN) (UNKNOWN) [Concomitant]
  5. ACYCLOVIR (ACICLOVIR) (UNKNOWN) [Concomitant]
  6. VITAMIN E (TOCOPHEROL) (UNKNOWN) [Concomitant]
  7. DAPSONE (DAPSONE) (UNKNOWN) [Concomitant]
  8. CALCIUM + VITAMIN D (CALCIUM D3 ^STADA^) (UNKNOWN) [Concomitant]
  9. DOXYCYCLINE (DOXYCYCLINE) (UNKNOWN) [Concomitant]
  10. ZOFRAN (ONDANSETRON HYDROCHLORIDE) (UNKNOWN) [Concomitant]
  11. OMEPRAZOLE (OMEPRAZOLE) (UNKNOWN) [Concomitant]
  12. LOMOTIL (LOMOTIL) (UNKNOWN) [Concomitant]
  13. HCTZ (HYDROCHLOROTHIAZIDE) (UNKNOWN) [Concomitant]
  14. BYSTOLIC (NEBIVOLOL HYDROCHLORIDE) (UNKOWN) [Concomitant]
  15. LAMOTRIGINE (LAMOTRIGINE) (UNKNOWN) [Concomitant]

REACTIONS (2)
  - Haemoglobin decreased [None]
  - No therapeutic response [None]
